FAERS Safety Report 16830601 (Version 1)
Quarter: 2019Q3

REPORT INFORMATION
  Report Type: Report from Study
  Country: FR (occurrence: FR)
  Receive Date: 20190920
  Receipt Date: 20190920
  Transmission Date: 20191005
  Serious: Yes (Hospitalization)
  Sender: FDA-Public Use
  Company Number: FR-REGENERON PHARMACEUTICALS, INC.-2019-54311

PATIENT

DRUGS (5)
  1. AERIUS                             /01009701/ [Concomitant]
     Active Substance: EBASTINE
     Indication: SEASONAL ALLERGY
     Dosage: 2 U, QD
     Route: 065
     Dates: start: 201812
  2. CEMIPLIMAB [Suspect]
     Active Substance: CEMIPLIMAB
     Indication: SQUAMOUS CELL CARCINOMA
     Dosage: 3 MG/KG, QOW
     Route: 042
     Dates: start: 20190517, end: 20190728
  3. OFLOCET                            /00731801/ [Concomitant]
     Active Substance: OFLOXACIN
     Indication: OTITIS MEDIA
     Dosage: 1 DROP, QD
     Route: 065
     Dates: start: 201805
  4. SINGULAIR [Concomitant]
     Active Substance: MONTELUKAST SODIUM
     Indication: SEASONAL ALLERGY
     Dosage: 1 U, QD
     Route: 065
     Dates: start: 201812
  5. DAFALGAN [Concomitant]
     Active Substance: ACETAMINOPHEN
     Indication: PAIN
     Dosage: 1 G, QD
     Route: 065
     Dates: start: 201712

REACTIONS (2)
  - Pulmonary embolism [Unknown]
  - Dyspnoea [Unknown]

NARRATIVE: CASE EVENT DATE: 201908
